FAERS Safety Report 9346934 (Version 2)
Quarter: 2013Q2

REPORT INFORMATION
  Report Type: Spontaneous
  Country: US (occurrence: US)
  Receive Date: 20130613
  Receipt Date: 20130613
  Transmission Date: 20140414
  Serious: Yes (Other)
  Sender: FDA-Public Use
  Company Number: US-UCBSA-083847

PATIENT
  Age: 44 Year
  Sex: Female
  Weight: 103 kg

DRUGS (4)
  1. NEURPO [Suspect]
     Indication: RESTLESS LEGS SYNDROME
     Route: 062
     Dates: start: 20130325, end: 20130415
  2. ATENOLOL [Concomitant]
     Indication: HYPERTENSION
  3. LEVOXYL [Concomitant]
     Indication: THYROID DISORDER
  4. PRAVASTATIN [Concomitant]
     Indication: BLOOD CHOLESTEROL INCREASED

REACTIONS (4)
  - Nightmare [Recovered/Resolved]
  - Dizziness [Recovered/Resolved]
  - Disorientation [Recovered/Resolved]
  - Joint stiffness [Recovered/Resolved]
